FAERS Safety Report 6644503-8 (Version None)
Quarter: 2010Q1

REPORT INFORMATION
  Report Type: 
  Country: None (occurrence: None)
  Receive Date: 20100317
  Receipt Date: 20100305
  Transmission Date: 20100710
  Serious: Yes (Hospitalization)
  Sender: FDA-Public Use
  Company Number: TCI2010A00849

PATIENT
  Age: 87 Year
  Sex: Female

DRUGS (7)
  1. LANSOPRAZOLE [Suspect]
     Indication: CONDITION AGGRAVATED
     Dosage: 15 MG (15 MG, 1 D), PER ORAL; 15 MG (15 MD, 1 D), PER ORAL; 15 MG (15 MG, 1 D), PER ORAL
     Route: 048
     Dates: start: 20060601, end: 20070101
  2. LANSOPRAZOLE [Suspect]
     Indication: DYSPEPSIA
     Dosage: 15 MG (15 MG, 1 D), PER ORAL; 15 MG (15 MD, 1 D), PER ORAL; 15 MG (15 MG, 1 D), PER ORAL
     Route: 048
     Dates: start: 20060601, end: 20070101
  3. LANSOPRAZOLE [Suspect]
     Indication: CONDITION AGGRAVATED
     Dosage: 15 MG (15 MG, 1 D), PER ORAL; 15 MG (15 MD, 1 D), PER ORAL; 15 MG (15 MG, 1 D), PER ORAL
     Route: 048
     Dates: start: 20070101, end: 20070101
  4. LANSOPRAZOLE [Suspect]
     Indication: DYSPEPSIA
     Dosage: 15 MG (15 MG, 1 D), PER ORAL; 15 MG (15 MD, 1 D), PER ORAL; 15 MG (15 MG, 1 D), PER ORAL
     Route: 048
     Dates: start: 20070101, end: 20070101
  5. LANSOPRAZOLE [Suspect]
     Indication: CONDITION AGGRAVATED
     Dosage: 15 MG (15 MG, 1 D), PER ORAL; 15 MG (15 MD, 1 D), PER ORAL; 15 MG (15 MG, 1 D), PER ORAL
     Route: 048
     Dates: start: 20070101, end: 20090101
  6. LANSOPRAZOLE [Suspect]
     Indication: DYSPEPSIA
     Dosage: 15 MG (15 MG, 1 D), PER ORAL; 15 MG (15 MD, 1 D), PER ORAL; 15 MG (15 MG, 1 D), PER ORAL
     Route: 048
     Dates: start: 20070101, end: 20090101
  7. NSAIDS (NSAID'S) [Concomitant]

REACTIONS (4)
  - COLITIS COLLAGENOUS [None]
  - DIARRHOEA [None]
  - HYPOALBUMINAEMIA [None]
  - PROCTITIS [None]
